FAERS Safety Report 16468977 (Version 1)
Quarter: 2019Q2

REPORT INFORMATION
  Report Type: Spontaneous
  Country: GB (occurrence: GB)
  Receive Date: 20190624
  Receipt Date: 20190624
  Transmission Date: 20190711
  Serious: Yes (Death, Life-Threatening, Hospitalization)
  Sender: FDA-Public Use
  Company Number: GB-ROCHE-2338239

PATIENT
  Age: 41 Year
  Sex: Male

DRUGS (1)
  1. CAPECITABINE. [Suspect]
     Active Substance: CAPECITABINE
     Indication: PRODUCT USED FOR UNKNOWN INDICATION
     Route: 065

REACTIONS (7)
  - Oral pain [Unknown]
  - Diarrhoea [Unknown]
  - Multiple organ dysfunction syndrome [Unknown]
  - Lethargy [Unknown]
  - Death [Fatal]
  - Decreased appetite [Unknown]
  - Mucosal inflammation [Unknown]
